FAERS Safety Report 7790087-0 (Version None)
Quarter: 2011Q3

REPORT INFORMATION
  Report Type: 
  Country: None (occurrence: None)
  Receive Date: 20110930
  Receipt Date: 20101012
  Transmission Date: 20111222
  Serious: No
  Sender: FDA-Public Use
  Company Number: US-ASTRAZENECA-2010SE48233

PATIENT
  Age: 26339 Day
  Sex: Female

DRUGS (5)
  1. ZOCOR [Concomitant]
  2. METFORMIN HCL [Concomitant]
     Indication: DIABETES MELLITUS
  3. VERAPAMIL [Concomitant]
  4. NEXIUM [Concomitant]
  5. ARIMIDEX [Suspect]
     Indication: BREAST CANCER
     Route: 048
     Dates: start: 20090201, end: 20100701

REACTIONS (1)
  - SPLENIC INFARCTION [None]
